FAERS Safety Report 8936287 (Version 1)
Quarter: 2012Q4

REPORT INFORMATION
  Report Type: 
  Country: US (occurrence: US)
  Receive Date: 20121130
  Receipt Date: 20121130
  Transmission Date: 20130627
  Serious: No
  Sender: FDA-Public Use
  Company Number: US-PFIZER INC-2012299468

PATIENT
  Age: 44 Year
  Sex: Female
  Weight: 68.03 kg

DRUGS (6)
  1. LYRICA [Suspect]
     Indication: FIBROMYALGIA
     Dosage: 150 mg, 3x/day
     Dates: end: 201209
  2. LYRICA [Suspect]
     Indication: EHLERS-DANLOS SYNDROME
  3. HYDROCODONE BITARTRATE AND ACETAMINOPHEN [Concomitant]
     Dosage: 5/325 mg, UNK
  4. PROZAC [Concomitant]
     Dosage: 40mg daily on Monday, Wednesday and Friday and 20mg daily on rest of days
  5. ALBUTEROL [Concomitant]
     Indication: ASTHMA
     Dosage: UNK
  6. PIROXICAM [Concomitant]
     Indication: ANTIINFLAMMATORY THERAPY
     Dosage: 20 mg, daily

REACTIONS (4)
  - Malaise [Recovered/Resolved]
  - Influenza [Recovered/Resolved]
  - Fatigue [Recovered/Resolved]
  - Bedridden [Recovered/Resolved]
